FAERS Safety Report 12652312 (Version 3)
Quarter: 2016Q4

REPORT INFORMATION
  Report Type: Spontaneous
  Country: HN (occurrence: HN)
  Receive Date: 20160815
  Receipt Date: 20161029
  Transmission Date: 20170207
  Serious: Yes (Life-Threatening)
  Sender: FDA-Public Use
  Company Number: HN-B.I. PHARMACEUTICALS,INC./RIDGEFIELD-2016-BI-53064MX

PATIENT
  Age: 77 Year
  Sex: Female
  Weight: 75 kg

DRUGS (2)
  1. AMIODARONE [Concomitant]
     Active Substance: AMIODARONE
     Indication: ATRIAL FIBRILLATION
     Route: 065
  2. PRADAXA [Suspect]
     Active Substance: DABIGATRAN ETEXILATE MESYLATE
     Indication: THROMBOSIS PROPHYLAXIS
     Route: 048
     Dates: start: 20160704, end: 20160710

REACTIONS (1)
  - Epidermal necrosis [Recovered/Resolved]

NARRATIVE: CASE EVENT DATE: 20160709
